FAERS Safety Report 13157790 (Version 1)
Quarter: 2017Q1

REPORT INFORMATION
  Report Type: Spontaneous
  Country: US (occurrence: US)
  Receive Date: 20170124
  Receipt Date: 20170124
  Transmission Date: 20170428
  Serious: No
  Sender: FDA-Public Use
  Company Number: None

PATIENT
  Age: 1 Day
  Sex: Male
  Weight: 2.94 kg

DRUGS (2)
  1. HEPARIN [Suspect]
     Active Substance: HEPARIN SODIUM
     Indication: THERAPEUTIC PROCEDURE
     Dosage: ?          OTHER FREQUENCY:PRESSURE MONITOR;?
     Route: 042
  2. HEPARIN [Suspect]
     Active Substance: HEPARIN SODIUM
     Indication: CATHETER MANAGEMENT
     Dosage: ?          OTHER FREQUENCY:PRESSURE MONITOR;?
     Route: 042
     Dates: start: 20170119, end: 20170119

REACTIONS (2)
  - Product label confusion [None]
  - Wrong drug administered [None]

NARRATIVE: CASE EVENT DATE: 20170119
